FAERS Safety Report 11224623 (Version 1)
Quarter: 2015Q2

REPORT INFORMATION
  Report Type: Spontaneous
  Country: US (occurrence: US)
  Receive Date: 20150629
  Receipt Date: 20150629
  Transmission Date: 20150821
  Serious: No
  Sender: FDA-Public Use
  Company Number: US-MYLANLABS-2015M1004618

PATIENT
  Sex: Female

DRUGS (3)
  1. XYZAL [Concomitant]
     Active Substance: LEVOCETIRIZINE DIHYDROCHLORIDE
     Dosage: UNK UNK, AM
  2. DOXEPIN [Suspect]
     Active Substance: DOXEPIN
     Indication: URTICARIA
     Dosage: UNK UNK, PM
     Dates: start: 201411
  3. DOXEPIN [Suspect]
     Active Substance: DOXEPIN
     Indication: OFF LABEL USE

REACTIONS (2)
  - Abdominal pain upper [Not Recovered/Not Resolved]
  - Drug effect decreased [Not Recovered/Not Resolved]
